FAERS Safety Report 14668736 (Version 1)
Quarter: 2018Q1

REPORT INFORMATION
  Report Type: Spontaneous
  Country: US (occurrence: US)
  Receive Date: 20180321
  Receipt Date: 20180321
  Transmission Date: 20180509
  Serious: No
  Sender: FDA-Public Use
  Company Number: None

PATIENT
  Age: 32 Year
  Sex: Female
  Weight: 54 kg

DRUGS (5)
  1. VITAMIN C [Concomitant]
     Active Substance: ASCORBIC ACID
  2. VITAMIN B [Concomitant]
     Active Substance: VITAMIN B
  3. IRON PILLS [Concomitant]
     Active Substance: IRON
  4. NIKKI [Suspect]
     Active Substance: DROSPIRENONE\ETHINYL ESTRADIOL
     Indication: CONTRACEPTION
     Dosage: ?          QUANTITY:1 TABLET(S);?
     Route: 048
  5. VITAMIN D [Concomitant]
     Active Substance: CHOLECALCIFEROL

REACTIONS (7)
  - Feeling abnormal [None]
  - Suicidal ideation [None]
  - Fear [None]
  - Abdominal distension [None]
  - Product substitution issue [None]
  - Panic attack [None]
  - Depression [None]

NARRATIVE: CASE EVENT DATE: 20180320
